FAERS Safety Report 23881206 (Version 1)
Quarter: 2024Q2

REPORT INFORMATION
  Report Type: Spontaneous
  Country: AU (occurrence: AU)
  Receive Date: 20240521
  Receipt Date: 20240521
  Transmission Date: 20240716
  Serious: Yes (Hospitalization)
  Sender: FDA-Public Use
  Company Number: AU-SUN PHARMACEUTICAL INDUSTRIES LTD-2024R1-446785

PATIENT
  Age: 62 Year
  Sex: Male

DRUGS (3)
  1. GEMCITABINE [Suspect]
     Active Substance: GEMCITABINE
     Indication: Ductal adenocarcinoma of pancreas
     Dosage: 2200 MILLIGRAM
     Route: 065
     Dates: start: 20231010, end: 20231121
  2. PACLITAXEL [Suspect]
     Active Substance: PACLITAXEL
     Indication: Ductal adenocarcinoma of pancreas
     Dosage: 275 MILLIGRAM
     Route: 065
     Dates: start: 20231010, end: 20231110
  3. IRGD [Suspect]
     Active Substance: IRGD
     Indication: Ductal adenocarcinoma of pancreas
     Dosage: 345 MILLIGRAM
     Route: 065
     Dates: start: 20231010, end: 20231121

REACTIONS (1)
  - Skin infection [Recovered/Resolved]

NARRATIVE: CASE EVENT DATE: 20231124
